FAERS Safety Report 13439395 (Version 3)
Quarter: 2017Q2

REPORT INFORMATION
  Report Type: Spontaneous
  Country: US (occurrence: US)
  Receive Date: 20170413
  Receipt Date: 20170524
  Transmission Date: 20170830
  Serious: No
  Sender: FDA-Public Use
  Company Number: PHEH2017US010120

PATIENT
  Sex: Female

DRUGS (2)
  1. ILEVRO [Suspect]
     Active Substance: NEPAFENAC
     Indication: PRODUCT USED FOR UNKNOWN INDICATION
     Dosage: 3 GTT, QD
     Route: 047
  2. VIGAMOX [Concomitant]
     Active Substance: MOXIFLOXACIN HYDROCHLORIDE
     Indication: POSTOPERATIVE CARE
     Route: 047

REACTIONS (2)
  - Product quality issue [Unknown]
  - Eye discharge [Unknown]
